FAERS Safety Report 4727780-X (Version None)
Quarter: 2005Q3

REPORT INFORMATION
  Report Type: 
  Country: None (occurrence: None)
  Receive Date: 20050725
  Receipt Date: 20050224
  Transmission Date: 20060218
  Serious: No
  Sender: FDA-Public Use
  Company Number: US_0503113860

PATIENT
  Sex: Male

DRUGS (2)
  1. STRATTERA [Suspect]
  2. PROVIGIL [Concomitant]

REACTIONS (2)
  - CHEST DISCOMFORT [None]
  - DRUG INTERACTION [None]
